FAERS Safety Report 23097647 (Version 1)
Quarter: 2023Q4

REPORT INFORMATION
  Report Type: Other
  Country: CN (occurrence: CN)
  Receive Date: 20231023
  Receipt Date: 20231023
  Transmission Date: 20240109
  Serious: Yes (Other)
  Sender: FDA-Public Use
  Company Number: CN-GE HEALTHCARE-2023CSU009253

PATIENT
  Age: 41 Year
  Sex: Male
  Weight: 75 kg

DRUGS (4)
  1. VISIPAQUE [Suspect]
     Active Substance: IODIXANOL
     Indication: Computerised tomogram heart
     Dosage: 32 GM, SINGLE
     Route: 013
     Dates: start: 20230526, end: 20230526
  2. VISIPAQUE [Suspect]
     Active Substance: IODIXANOL
     Indication: Angina unstable
  3. VISIPAQUE [Suspect]
     Active Substance: IODIXANOL
     Indication: Chest pain
  4. VISIPAQUE [Suspect]
     Active Substance: IODIXANOL
     Indication: Coronary artery disease

REACTIONS (1)
  - Henoch-Schonlein purpura [Recovering/Resolving]

NARRATIVE: CASE EVENT DATE: 20230528
